FAERS Safety Report 10048527 (Version 3)
Quarter: 2014Q2

REPORT INFORMATION
  Report Type: Spontaneous
  Country: IT (occurrence: IT)
  Receive Date: 20140331
  Receipt Date: 20140507
  Transmission Date: 20141212
  Serious: Yes (Death, Hospitalization, Other)
  Sender: FDA-Public Use
  Company Number: IT-ELI_LILLY_AND_COMPANY-IT201403009732

PATIENT
  Age: 75 Year
  Sex: Male
  Weight: 78 kg

DRUGS (3)
  1. ALIMTA [Suspect]
     Indication: LUNG NEOPLASM MALIGNANT
     Dosage: 500 MG/M2, CYCLICAL
     Route: 042
     Dates: start: 20140122, end: 20140212
  2. CISPLATIN [Suspect]
     Indication: LUNG NEOPLASM MALIGNANT
     Dosage: 60 MG/M2, CYCLICAL
     Route: 065
     Dates: start: 20140122
  3. CARBOPLATIN [Suspect]
     Indication: LUNG NEOPLASM MALIGNANT
     Dosage: 320 MG, CYCLICAL
     Route: 042
     Dates: start: 20140212, end: 20140212

REACTIONS (18)
  - Acute pulmonary oedema [Fatal]
  - Bone marrow toxicity [Fatal]
  - Pulmonary haemorrhage [Fatal]
  - Hepatocellular carcinoma [Fatal]
  - Hepatic failure [Fatal]
  - Renal failure [Fatal]
  - Bronchopneumonia [Fatal]
  - Asthenia [Unknown]
  - Pyrexia [Unknown]
  - Decreased appetite [Unknown]
  - Diarrhoea [Unknown]
  - Neutropenia [Not Recovered/Not Resolved]
  - Thrombocytopenia [Not Recovered/Not Resolved]
  - Nephropathy toxic [Unknown]
  - Chronic obstructive pulmonary disease [Unknown]
  - Vomiting [Unknown]
  - Nausea [Unknown]
  - Off label use [Unknown]
